FAERS Safety Report 8855456 (Version 3)
Quarter: 2013Q3

REPORT INFORMATION
  Report Type: Spontaneous
  Country: US (occurrence: US)
  Receive Date: 20121023
  Receipt Date: 20130828
  Transmission Date: 20140515
  Serious: Yes (Other)
  Sender: FDA-Public Use
  Company Number: US-AMGEN-USASP2012060041

PATIENT
  Age: 73 Year
  Sex: Male

DRUGS (4)
  1. ENBREL [Suspect]
     Indication: PSORIATIC ARTHROPATHY
     Dosage: 50 MG, QWK
     Route: 058
     Dates: start: 20120903
  2. ENBREL [Suspect]
     Indication: PSORIASIS
  3. TESTOSTERONE [Concomitant]
     Dosage: UNK
  4. THYROID [Concomitant]
     Dosage: UNK

REACTIONS (10)
  - Large intestine polyp [Recovered/Resolved]
  - Squamous cell carcinoma of skin [Not Recovered/Not Resolved]
  - Basal cell carcinoma [Not Recovered/Not Resolved]
  - Fatigue [Not Recovered/Not Resolved]
  - Full blood count decreased [Recovered/Resolved]
  - Arthralgia [Recovered/Resolved]
  - Prostatomegaly [Not Recovered/Not Resolved]
  - Nodule [Not Recovered/Not Resolved]
  - Injection site discomfort [Recovered/Resolved]
  - Fungal skin infection [Not Recovered/Not Resolved]
